FAERS Safety Report 11013567 (Version 2)
Quarter: 2015Q2

REPORT INFORMATION
  Report Type: Spontaneous
  Country: US (occurrence: US)
  Receive Date: 20150411
  Receipt Date: 20150525
  Transmission Date: 20150821
  Serious: Yes (Other)
  Sender: FDA-Public Use
  Company Number: US-JNJFOC-20130706886

PATIENT
  Age: 53 Year
  Sex: Female
  Weight: 68.95 kg

DRUGS (18)
  1. REMICADE [Suspect]
     Active Substance: INFLIXIMAB
     Indication: CROHN^S DISEASE
     Dosage: FIRST DOSE
     Route: 042
     Dates: start: 20130509
  2. VITAMIN B12 [Concomitant]
     Active Substance: CYANOCOBALAMIN
     Indication: VITAMIN B12 DEFICIENCY
     Route: 065
     Dates: start: 2012
  3. VITAMINS NOS [Concomitant]
     Active Substance: VITAMINS
     Dosage: REPORTED INDICATION WAS EXTRA VITAMINS
     Route: 065
     Dates: start: 2001
  4. VITAMIN D [Concomitant]
     Active Substance: CHOLECALCIFEROL
     Indication: VITAMIN D DEFICIENCY
     Route: 048
  5. VIACTIV WITH D [Concomitant]
     Indication: CROHN^S DISEASE
     Route: 065
  6. PENTASA [Concomitant]
     Active Substance: MESALAMINE
     Indication: CROHN^S DISEASE
     Route: 048
     Dates: start: 2001
  7. LEXAPRO [Concomitant]
     Active Substance: ESCITALOPRAM OXALATE
     Route: 065
  8. HYDROCORTISONE. [Concomitant]
     Active Substance: HYDROCORTISONE
     Indication: PREMEDICATION
     Route: 042
  9. REMICADE [Suspect]
     Active Substance: INFLIXIMAB
     Indication: CROHN^S DISEASE
     Dosage: 2 WEEKS, 6 WEEKS THEN ONCE EVERY 6 WEEKS
     Route: 042
     Dates: start: 20130524
  10. VITAMIN D2 [Concomitant]
     Active Substance: ERGOCALCIFEROL
     Dosage: SINCE 1 YEAR
     Route: 048
  11. HUMIRA [Concomitant]
     Active Substance: ADALIMUMAB
     Route: 065
  12. CIMZIA [Concomitant]
     Active Substance: CERTOLIZUMAB PEGOL
     Route: 065
  13. BENADRYL [Concomitant]
     Active Substance: DIPHENHYDRAMINE HYDROCHLORIDE
     Indication: PREMEDICATION
     Route: 048
  14. IMODIUM [Concomitant]
     Active Substance: LOPERAMIDE HYDROCHLORIDE
     Route: 065
  15. TYLENOL [Concomitant]
     Active Substance: ACETAMINOPHEN
     Indication: PREMEDICATION
     Route: 048
  16. REMICADE [Suspect]
     Active Substance: INFLIXIMAB
     Indication: CROHN^S DISEASE
     Route: 042
     Dates: start: 2006
  17. CALCIUM [Concomitant]
     Active Substance: CALCIUM
     Route: 065
     Dates: start: 2001
  18. LOMOTIL [Concomitant]
     Active Substance: ATROPINE SULFATE\DIPHENOXYLATE HYDROCHLORIDE
     Dosage: AS NEEDED
     Route: 065

REACTIONS (2)
  - Infusion related reaction [Recovered/Resolved]
  - Drug hypersensitivity [Recovered/Resolved]

NARRATIVE: CASE EVENT DATE: 20130524
